FAERS Safety Report 20425031 (Version 1)
Quarter: 2022Q1

REPORT INFORMATION
  Report Type: Spontaneous
  Country: AU (occurrence: AU)
  Receive Date: 20220204
  Receipt Date: 20220204
  Transmission Date: 20220423
  Serious: No
  Sender: FDA-Public Use
  Company Number: AU-EXELIXIS-CABO-21036903

PATIENT
  Age: 59 Year
  Sex: Female

DRUGS (14)
  1. CABOMETYX [Suspect]
     Active Substance: CABOZANTINIB S-MALATE
     Indication: Product used for unknown indication
  2. METOCLOPRAMIDE [Concomitant]
     Active Substance: METOCLOPRAMIDE
  3. NICOTINE [Concomitant]
     Active Substance: NICOTINE
  4. ONDANSETRON [Concomitant]
     Active Substance: ONDANSETRON
  5. ACETAMINOPHEN [Concomitant]
     Active Substance: ACETAMINOPHEN
  6. RAMIPRIL [Concomitant]
     Active Substance: RAMIPRIL
  7. PAROXETINE HYDROCHLORIDE [Concomitant]
     Active Substance: PAROXETINE HYDROCHLORIDE
  8. CLEARLAX [Concomitant]
     Active Substance: POLYETHYLENE GLYCOL 3350
  9. OXYCODONE HYDROCHLORIDE [Concomitant]
     Active Substance: OXYCODONE HYDROCHLORIDE
  10. HYALURONATE SODIUM [Concomitant]
     Active Substance: HYALURONATE SODIUM
  11. Panto [Concomitant]
  12. Rennie [Concomitant]
  13. SEROQUEL [Concomitant]
     Active Substance: QUETIAPINE FUMARATE
  14. NALOXONE HYDROCHLORIDE\OXYCODONE HYDROCHLORIDE [Concomitant]
     Active Substance: NALOXONE HYDROCHLORIDE\OXYCODONE HYDROCHLORIDE

REACTIONS (3)
  - Dysphagia [Unknown]
  - Dyspnoea [Unknown]
  - Vomiting [Unknown]
